FAERS Safety Report 7004555-2 (Version None)
Quarter: 2010Q3

REPORT INFORMATION
  Report Type: 
  Country: None (occurrence: None)
  Receive Date: 20100921
  Receipt Date: 20100913
  Transmission Date: 20110219
  Serious: No
  Sender: FDA-Public Use
  Company Number: 2010BI003399

PATIENT
  Age: 64 Year
  Sex: Female

DRUGS (1)
  1. TYSABRI [Suspect]
     Indication: MULTIPLE SCLEROSIS
     Route: 042
     Dates: start: 20090724, end: 20091116

REACTIONS (5)
  - BURNING SENSATION [None]
  - HERPES SIMPLEX [None]
  - HERPES VIRUS INFECTION [None]
  - HERPES ZOSTER [None]
  - PAIN [None]
